FAERS Safety Report 9208354 (Version 1)
Quarter: 2013Q2

REPORT INFORMATION
  Report Type: Spontaneous
  Country: BR (occurrence: BR)
  Receive Date: 20130404
  Receipt Date: 20130404
  Transmission Date: 20140414
  Serious: Yes (Other)
  Sender: FDA-Public Use
  Company Number: BR-AMGEN-BRASP2013022820

PATIENT
  Age: 60 Year
  Sex: Male
  Weight: 120 kg

DRUGS (6)
  1. ENBREL [Suspect]
     Indication: ANKYLOSING SPONDYLITIS
     Dosage: 50 MG, ONCE WEEKLY
     Route: 058
     Dates: start: 20130225
  2. METFORMIN [Concomitant]
     Dosage: 3 TABLETS (850 MG) A DAY
     Dates: start: 2008
  3. NATRILIX                           /00340101/ [Concomitant]
     Indication: BLOOD PRESSURE INCREASED
     Dosage: 1X/DAY
  4. LOSARTAN [Concomitant]
     Dosage: 3 TABLETS (20MG EACH) A DAY
  5. DIAMICRON [Concomitant]
     Indication: DIABETES MELLITUS
     Dosage: 2 TABLETS (UNSPECIFIED DATE) 1X/DAY (IN THE MORNING)
  6. DIAMICRON [Concomitant]
     Dosage: UNK

REACTIONS (2)
  - Eye inflammation [Not Recovered/Not Resolved]
  - Uveitis [Not Recovered/Not Resolved]
